FAERS Safety Report 13076218 (Version 2)
Quarter: 2017Q1

REPORT INFORMATION
  Report Type: Spontaneous
  Country: US (occurrence: US)
  Receive Date: 20161230
  Receipt Date: 20170111
  Transmission Date: 20170428
  Serious: Yes (Other)
  Sender: FDA-Public Use
  Company Number: US-MYLANLABS-2016M1059039

PATIENT

DRUGS (1)
  1. TEMAZEPAM. [Suspect]
     Active Substance: TEMAZEPAM
     Indication: INSOMNIA
     Dosage: 7.5 MG, HS
     Route: 048
     Dates: start: 20161203, end: 20161208

REACTIONS (6)
  - Decreased appetite [Recovered/Resolved]
  - Drug effect decreased [Recovered/Resolved]
  - Diarrhoea haemorrhagic [Recovered/Resolved]
  - Sinus headache [Recovered/Resolved]
  - Vomiting [Recovered/Resolved]
  - Reaction to drug excipients [Recovered/Resolved]

NARRATIVE: CASE EVENT DATE: 20161203
